FAERS Safety Report 15338653 (Version 2)
Quarter: 2019Q1

REPORT INFORMATION
  Report Type: Spontaneous
  Country: US (occurrence: US)
  Receive Date: 20180831
  Receipt Date: 20190307
  Transmission Date: 20190417
  Serious: No
  Sender: FDA-Public Use
  Company Number: US-INTERCEPT-PMOCA2018000980

PATIENT

DRUGS (1)
  1. OCALIVA [Suspect]
     Active Substance: OBETICHOLIC ACID
     Indication: PRIMARY BILIARY CHOLANGITIS
     Dosage: 5 MG, QD
     Route: 048
     Dates: start: 20180530

REACTIONS (6)
  - Headache [Unknown]
  - Blood alkaline phosphatase increased [Recovering/Resolving]
  - Pruritus [Recovered/Resolved]
  - Paraesthesia [Recovered/Resolved]
  - Fatigue [Unknown]
  - Myalgia [Unknown]

NARRATIVE: CASE EVENT DATE: 2018
